FAERS Safety Report 15521527 (Version 1)
Quarter: 2018Q4

REPORT INFORMATION
  Report Type: Report from Study
  Country: US (occurrence: US)
  Receive Date: 20181017
  Receipt Date: 20181017
  Transmission Date: 20190205
  Serious: No
  Sender: FDA-Public Use
  Company Number: US-AMGEN-USASL2018123408

PATIENT
  Age: 51 Year
  Sex: Female

DRUGS (2)
  1. REPATHA [Suspect]
     Active Substance: EVOLOCUMAB
     Indication: HYPERLIPIDAEMIA
     Dosage: 140 MG, Q2WK
     Route: 058
  2. REPATHA [Suspect]
     Active Substance: EVOLOCUMAB
     Indication: CHEST PAIN
     Dosage: UNK
     Route: 058

REACTIONS (7)
  - Injection site pain [Unknown]
  - Intentional product misuse [Unknown]
  - Influenza like illness [Unknown]
  - Vomiting [Unknown]
  - Nasopharyngitis [Unknown]
  - Chills [Unknown]
  - Hot flush [Unknown]
